FAERS Safety Report 10964066 (Version 2)
Quarter: 2015Q2

REPORT INFORMATION
  Report Type: Spontaneous
  Country: US (occurrence: US)
  Receive Date: 20150329
  Receipt Date: 20150524
  Transmission Date: 20150821
  Serious: No
  Sender: FDA-Public Use
  Company Number: US-JNJFOC-20130603479

PATIENT

DRUGS (1)
  1. FENTANYL TRANSDERMAL SYSTEM [Suspect]
     Active Substance: FENTANYL
     Indication: PRODUCT USED FOR UNKNOWN INDICATION
     Route: 062
     Dates: start: 2009, end: 2009

REACTIONS (5)
  - Application site haemorrhage [Unknown]
  - Application site erythema [Unknown]
  - Skin reaction [Unknown]
  - Application site pain [Unknown]
  - Headache [Unknown]

NARRATIVE: CASE EVENT DATE: 2009
